FAERS Safety Report 4859586-5 (Version None)
Quarter: 2005Q4

REPORT INFORMATION
  Report Type: 
  Country: None (occurrence: None)
  Receive Date: 20051219
  Receipt Date: 20050624
  Transmission Date: 20060501
  Serious: No
  Sender: FDA-Public Use
  Company Number: US-GLAXOSMITHKLINE-A0564065A

PATIENT
  Age: 53 Year
  Sex: Female

DRUGS (10)
  1. EQUATE NTS 21MG [Suspect]
     Dates: start: 20050523
  2. ZYBAN [Concomitant]
  3. MUSCLE RELAXANT [Concomitant]
  4. NON STEROIDAL ANTI-INFLAMMATORY DRUGS [Concomitant]
  5. BLOOD PRESSURE MEDICINES [Concomitant]
  6. ANTIDEPRESSANT [Concomitant]
  7. ANTI-ARRYTHMIC [Concomitant]
  8. ANTI-ANGINAL MEDICATION [Concomitant]
  9. VITAMINS [Concomitant]
  10. ANTI INFLAMMATORY DRUG [Concomitant]

REACTIONS (2)
  - APPLICATION SITE ERYTHEMA [None]
  - APPLICATION SITE PRURITUS [None]
